FAERS Safety Report 25249417 (Version 1)
Quarter: 2025Q2

REPORT INFORMATION
  Report Type: Spontaneous
  Country: US (occurrence: US)
  Receive Date: 20250429
  Receipt Date: 20250429
  Transmission Date: 20250716
  Serious: Yes (Life-Threatening, Hospitalization, Other)
  Sender: EPIC PHARM
  Company Number: US-EPICPHARMA-US-2025EPCLIT00482

PATIENT
  Age: 15 Year
  Sex: Male

DRUGS (3)
  1. LIDOCAINE HYDROCHLORIDE [Suspect]
     Active Substance: LIDOCAINE HYDROCHLORIDE
     Indication: Pain
     Route: 065
  2. KETAMINE [Concomitant]
     Active Substance: KETAMINE
     Route: 065
  3. MEXILETINE [Concomitant]
     Active Substance: MEXILETINE
     Route: 048

REACTIONS (7)
  - Cardiogenic shock [Unknown]
  - Mental status changes [Unknown]
  - Hypertonia [Unknown]
  - Hypotension [Unknown]
  - Bradycardia [Unknown]
  - Toxicity to various agents [Unknown]
  - Product use in unapproved indication [Unknown]
